APPROVED DRUG PRODUCT: VENLAFAXINE HYDROCHLORIDE
Active Ingredient: VENLAFAXINE HYDROCHLORIDE
Strength: EQ 37.5MG BASE
Dosage Form/Route: TABLET, EXTENDED RELEASE;ORAL
Application: A218180 | Product #001
Applicant: TORRENT PHARMACEUTICALS LTD
Approved: Jan 28, 2025 | RLD: No | RS: No | Type: DISCN